FAERS Safety Report 7616847-4 (Version None)
Quarter: 2011Q3

REPORT INFORMATION
  Report Type: 
  Country: None (occurrence: None)
  Receive Date: 20110718
  Receipt Date: 20110706
  Transmission Date: 20111222
  Serious: No
  Sender: FDA-Public Use
  Company Number: US-BIOGENIDEC-2011BI025025

PATIENT
  Age: 41 Year
  Sex: Female

DRUGS (1)
  1. TYSABRI [Suspect]
     Indication: MULTIPLE SCLEROSIS
     Route: 042
     Dates: start: 20080101

REACTIONS (6)
  - ARRHYTHMIA [None]
  - CHEST PAIN [None]
  - CHOKING SENSATION [None]
  - COUGH [None]
  - ATRIAL FIBRILLATION [None]
  - FATIGUE [None]
